FAERS Safety Report 16967990 (Version 3)
Quarter: 2019Q4

REPORT INFORMATION
  Report Type: Report from Study
  Country: SK (occurrence: SK)
  Receive Date: 20191028
  Receipt Date: 20191206
  Transmission Date: 20200122
  Serious: Yes (Other)
  Sender: FDA-Public Use
  Company Number: PHHY2016SK121753

PATIENT
  Age: 59 Year
  Sex: Female

DRUGS (1)
  1. GILENYA [Suspect]
     Active Substance: FINGOLIMOD HYDROCHLORIDE
     Indication: MULTIPLE SCLEROSIS
     Dosage: UNK, QD
     Route: 048
     Dates: start: 20140205

REACTIONS (4)
  - Hypertension [Recovered/Resolved]
  - Viral infection [Recovered/Resolved]
  - Vertebrobasilar insufficiency [Recovered/Resolved]
  - Acute vestibular syndrome [Unknown]

NARRATIVE: CASE EVENT DATE: 20160320
